FAERS Safety Report 6523012-0 (Version None)
Quarter: 2009Q4

REPORT INFORMATION
  Report Type: 
  Country: None (occurrence: None)
  Receive Date: 20091222
  Receipt Date: 20091217
  Transmission Date: 20100525
  Serious: Yes (Disabling)
  Sender: FDA-Public Use
  Company Number: 2009010980

PATIENT
  Age: 38 Year
  Sex: Female

DRUGS (2)
  1. PROVIGIL [Suspect]
     Indication: NARCOLEPSY
     Dosage: 200 MG, ORAL; 400 MG, ORAL
     Route: 048
     Dates: start: 20050601
  2. PROVIGIL [Suspect]
     Indication: SOMNOLENCE
     Dosage: 200 MG, ORAL; 400 MG, ORAL
     Route: 048
     Dates: start: 20050601

REACTIONS (1)
  - COLITIS ULCERATIVE [None]
